FAERS Safety Report 8384762-7 (Version None)
Quarter: 2012Q2

REPORT INFORMATION
  Report Type: 
  Country: None (occurrence: None)
  Receive Date: 20120524
  Receipt Date: 20120523
  Transmission Date: 20120825
  Serious: Yes (Death)
  Sender: FDA-Public Use
  Company Number: IT-ROCHE-1071493

PATIENT
  Sex: Female

DRUGS (1)
  1. ACTEMRA [Suspect]
     Indication: PRODUCT USED FOR UNKNOWN INDICATION

REACTIONS (6)
  - ARTHRALGIA [None]
  - DYSPNOEA [None]
  - OROPHARYNGEAL PAIN [None]
  - ORAL CANDIDIASIS [None]
  - PYREXIA [None]
  - ASTHENIA [None]
